FAERS Safety Report 23463086 (Version 1)
Quarter: 2024Q1

REPORT INFORMATION
  Report Type: Spontaneous
  Country: DK (occurrence: DK)
  Receive Date: 20240131
  Receipt Date: 20240131
  Transmission Date: 20240410
  Serious: Yes (Hospitalization)
  Sender: FDA-Public Use
  Company Number: None

PATIENT
  Age: 82 Year
  Sex: Male

DRUGS (1)
  1. KEYTRUDA [Suspect]
     Active Substance: PEMBROLIZUMAB
     Indication: Metastatic malignant melanoma
     Dosage: DOSAGE: 4MG/KG - APPROX. 360 MG IN TOTAL WITH UNKNOWN FREQUENCY. STRENGTH: 25 MG/ML.
     Route: 042
     Dates: start: 20230502, end: 20240108

REACTIONS (6)
  - Nausea [Unknown]
  - Myalgia [Unknown]
  - Hypophysitis [Not Recovered/Not Resolved]
  - Abdominal pain upper [Unknown]
  - Weight decreased [Unknown]
  - Fatigue [Unknown]

NARRATIVE: CASE EVENT DATE: 20240108
